FAERS Safety Report 12460192 (Version 1)
Quarter: 2016Q2

REPORT INFORMATION
  Report Type: Report from Study
  Country: CA (occurrence: CA)
  Receive Date: 20160613
  Receipt Date: 20160613
  Transmission Date: 20160815
  Serious: Yes (Other)
  Sender: FDA-Public Use
  Company Number: CA-AMGEN-CANSL2016073212

PATIENT
  Age: 73 Year
  Sex: Female

DRUGS (17)
  1. ASPIRIN. [Concomitant]
     Active Substance: ASPIRIN
  2. SPIRIVA [Concomitant]
     Active Substance: TIOTROPIUM BROMIDE MONOHYDRATE
  3. ACETAMINOPHEN. [Concomitant]
     Active Substance: ACETAMINOPHEN
  4. ROPINIROLE. [Concomitant]
     Active Substance: ROPINIROLE
  5. SALBUTAMOL [Concomitant]
     Active Substance: ALBUTEROL
  6. REPATHA [Suspect]
     Active Substance: EVOLOCUMAB
     Indication: PRODUCT USED FOR UNKNOWN INDICATION
     Dosage: 140 MG/ML, UNK
     Route: 065
  7. SYNTHROID [Concomitant]
     Active Substance: LEVOTHYROXINE SODIUM
  8. ADVAIR HFA [Concomitant]
     Active Substance: FLUTICASONE PROPIONATE\SALMETEROL XINAFOATE
  9. RELAXA [Concomitant]
  10. DOCUSATE [Concomitant]
     Active Substance: DOCUSATE
  11. GABAPENTIN. [Concomitant]
     Active Substance: GABAPENTIN
  12. DOMPERIDONE [Concomitant]
     Active Substance: DOMPERIDONE
  13. OMEPRAZOLE. [Concomitant]
     Active Substance: OMEPRAZOLE
  14. PROBIOTIC [Concomitant]
     Active Substance: PROBIOTICS NOS
  15. CALCITE [Concomitant]
     Active Substance: CALCIUM CARBONATE
  16. CLONAZEPAM. [Concomitant]
     Active Substance: CLONAZEPAM
  17. CARBOLITH [Concomitant]
     Active Substance: LITHIUM CARBONATE

REACTIONS (5)
  - Sleep disorder due to a general medical condition [Recovered/Resolved]
  - Headache [Recovered/Resolved]
  - Pain [Recovered/Resolved]
  - Escherichia urinary tract infection [Recovering/Resolving]
  - Tendonitis [Recovered/Resolved]

NARRATIVE: CASE EVENT DATE: 20160531
